FAERS Safety Report 7318415-0 (Version None)
Quarter: 2011Q1

REPORT INFORMATION
  Report Type: 
  Country: None (occurrence: None)
  Receive Date: 20110228
  Receipt Date: 20110217
  Transmission Date: 20110831
  Serious: Yes (Death, Hospitalization)
  Sender: FDA-Public Use
  Company Number: BR-ELI_LILLY_AND_COMPANY-BR201102004970

PATIENT
  Sex: Female
  Weight: 38 kg

DRUGS (1)
  1. FORTEO [Suspect]
     Indication: OSTEOPOROSIS
     Dosage: UNK, DAILY (1/D)
     Route: 065
     Dates: end: 20110213

REACTIONS (4)
  - CEREBROVASCULAR ACCIDENT [None]
  - CARDIOGENIC SHOCK [None]
  - HYPERTENSION [None]
  - ARTERIOSCLEROSIS [None]
